FAERS Safety Report 8620708-1 (Version None)
Quarter: 2012Q3

REPORT INFORMATION
  Report Type: 
  Country: None (occurrence: None)
  Receive Date: 20120824
  Receipt Date: 20120820
  Transmission Date: 20120928
  Serious: Yes (Other)
  Sender: FDA-Public Use
  Company Number: US-TEVA-355122USA

PATIENT
  Age: 84 Year
  Sex: Male

DRUGS (5)
  1. PIPERACILLIN/TAZOBACTAM [Concomitant]
     Route: 065
  2. CEFEPIME [Suspect]
     Route: 065
  3. ESOMEPRAZOLE SODIUM [Concomitant]
     Route: 065
  4. MEROPENEM [Concomitant]
     Route: 065
  5. CEFTRIAXONE [Suspect]
     Route: 065

REACTIONS (3)
  - CONDITION AGGRAVATED [None]
  - RASH MORBILLIFORM [None]
  - DRUG HYPERSENSITIVITY [None]
